FAERS Safety Report 17799133 (Version 1)
Quarter: 2020Q2

REPORT INFORMATION
  Report Type: Spontaneous
  Country: DK (occurrence: DK)
  Receive Date: 20200518
  Receipt Date: 20200518
  Transmission Date: 20200714
  Serious: Yes (Other)
  Sender: FDA-Public Use
  Company Number: DK-GALDERMA-DK2020023528

PATIENT
  Sex: Female

DRUGS (1)
  1. ROZEX (METRONIDAZOLE) [Suspect]
     Active Substance: METRONIDAZOLE
     Indication: ROSACEA
     Dosage: 0.75%
     Route: 061
     Dates: start: 202004, end: 202004

REACTIONS (3)
  - Staphylococcal infection [Unknown]
  - Adverse event [Unknown]
  - Suspected product quality issue [Recovered/Resolved]

NARRATIVE: CASE EVENT DATE: 2020
